FAERS Safety Report 8315695 (Version 3)
Quarter: 2013Q2

REPORT INFORMATION
  Report Type: Report from Study
  Country: US (occurrence: US)
  Receive Date: 20111229
  Receipt Date: 20130520
  Transmission Date: 20140414
  Serious: Yes (Hospitalization, Other)
  Sender: FDA-Public Use
  Company Number: US-PFIZER INC-2011309679

PATIENT
  Age: 49 Year
  Sex: Female
  Weight: 87.53 kg

DRUGS (6)
  1. EFFEXOR XR [Suspect]
     Indication: MOOD SWINGS
     Dosage: 225 MG, 1X/DAY
     Route: 048
     Dates: end: 20111208
  2. EFFEXOR XR [Suspect]
     Indication: PAIN
     Dosage: 225 MG, 1X/DAY
     Route: 048
     Dates: end: 201303
  3. EFFEXOR XR [Suspect]
     Indication: FIBROMYALGIA
     Dosage: UNK
  4. XANAX [Suspect]
     Dosage: UNK
     Dates: end: 20111208
  5. SOMA [Suspect]
     Indication: MUSCLE SPASMS
     Dosage: 350 MG ONCE DAILY OR TWO TIMES A DAY
  6. VICODIN ES [Concomitant]
     Indication: BACK DISORDER
     Dosage: 7.5/750 MG, AS NEEDED

REACTIONS (14)
  - Suicidal ideation [Unknown]
  - Withdrawal syndrome [Unknown]
  - Palpitations [Unknown]
  - Nausea [Unknown]
  - Feeling abnormal [Unknown]
  - Hot flush [Unknown]
  - Dizziness [Unknown]
  - Feeling cold [Unknown]
  - Gastrooesophageal reflux disease [Unknown]
  - Pain [Not Recovered/Not Resolved]
  - Bedridden [Not Recovered/Not Resolved]
  - Insomnia [Unknown]
  - Off label use [Unknown]
  - Intentional drug misuse [Unknown]
